FAERS Safety Report 10306013 (Version 1)
Quarter: 2014Q3

REPORT INFORMATION
  Report Type: Spontaneous
  Country: US (occurrence: None)
  Receive Date: 20140714
  Receipt Date: 20140714
  Transmission Date: 20150326
  Serious: Yes (Life-Threatening, Hospitalization, Disabling)
  Sender: FDA-Public Use
  Company Number: None

PATIENT
  Age: 61 Year
  Sex: Female
  Weight: 107.05 kg

DRUGS (1)
  1. LITHIUM [Suspect]
     Active Substance: LITHIUM CARBONATE
     Indication: MOOD ALTERED
     Dosage: 2 PILLS/DAY

REACTIONS (4)
  - Weight increased [None]
  - Diabetes insipidus [None]
  - Renal disorder [None]
  - Azotaemia [None]

NARRATIVE: CASE EVENT DATE: 20140515
